FAERS Safety Report 9281059 (Version 2)
Quarter: 2013Q2

REPORT INFORMATION
  Report Type: Spontaneous
  Country: US (occurrence: US)
  Receive Date: 20130509
  Receipt Date: 20130521
  Transmission Date: 20140414
  Serious: Yes (Other)
  Sender: FDA-Public Use
  Company Number: US-AMGEN-USASP2013031337

PATIENT
  Age: 72 Year
  Sex: Male
  Weight: 85.5 kg

DRUGS (1)
  1. SENSIPAR [Suspect]
     Indication: HYPERPARATHYROIDISM SECONDARY
     Dosage: 30 MG, QD
     Route: 048
     Dates: start: 20130422, end: 20130428

REACTIONS (5)
  - Gastrointestinal haemorrhage [Unknown]
  - Rectal haemorrhage [Recovered/Resolved]
  - Abdominal discomfort [Recovered/Resolved]
  - Vomiting [Unknown]
  - Nausea [Unknown]
